FAERS Safety Report 22083247 (Version 2)
Quarter: 2023Q2

REPORT INFORMATION
  Report Type: Spontaneous
  Country: FR (occurrence: FR)
  Receive Date: 20230310
  Receipt Date: 20230414
  Transmission Date: 20230722
  Serious: Yes (Other)
  Sender: FDA-Public Use
  Company Number: FR-GLAXOSMITHKLINE-ES2023EME035108

PATIENT

DRUGS (1)
  1. NUCALA [Suspect]
     Active Substance: MEPOLIZUMAB
     Indication: Product used for unknown indication
     Dosage: UNK
     Dates: start: 202206

REACTIONS (8)
  - Macroglossia [Unknown]
  - Glossodynia [Unknown]
  - Atrophic glossitis [Unknown]
  - Eyelid oedema [Unknown]
  - Eye swelling [Unknown]
  - Face oedema [Unknown]
  - Rash erythematous [Recovered/Resolved]
  - Inappropriate schedule of product administration [Unknown]

NARRATIVE: CASE EVENT DATE: 20221201
